FAERS Safety Report 8462262-3 (Version None)
Quarter: 2012Q2

REPORT INFORMATION
  Report Type: 
  Country: None (occurrence: None)
  Receive Date: 20120625
  Receipt Date: 20120615
  Transmission Date: 20120825
  Serious: Yes (Hospitalization)
  Sender: FDA-Public Use
  Company Number: BR-ASTRAZENECA-2012SE40670

PATIENT
  Age: 56 Year
  Sex: Male
  Weight: 92 kg

DRUGS (7)
  1. SUPLAN [Concomitant]
     Indication: DEPRESSION
     Route: 048
     Dates: start: 20100101
  2. COUMADIN [Concomitant]
     Indication: THROMBOSIS PROPHYLAXIS
     Route: 048
     Dates: start: 20090101
  3. PRESSAT [Concomitant]
     Indication: HYPERTENSION
     Route: 048
     Dates: start: 20000101
  4. MENLAT [Concomitant]
     Indication: DEPRESSION
     Route: 048
     Dates: start: 20100101
  5. INDAPAMIDE [Concomitant]
     Indication: HYPERTENSION
     Route: 048
     Dates: start: 20000101
  6. SYMBICORT [Suspect]
     Dosage: 160/4.5 MCG, BID
     Route: 055
     Dates: start: 20020101
  7. ZESTRIL [Suspect]
     Indication: HYPERTENSION
     Route: 048
     Dates: start: 20000101

REACTIONS (3)
  - DEPRESSION [None]
  - DYSPNOEA [None]
  - THROMBOSIS [None]
